FAERS Safety Report 7957618-9 (Version None)
Quarter: 2011Q4

REPORT INFORMATION
  Report Type: 
  Country: None (occurrence: None)
  Receive Date: 20111205
  Receipt Date: 20111122
  Transmission Date: 20120403
  Serious: Yes (Hospitalization)
  Sender: FDA-Public Use
  Company Number: PHHY2011CA101442

PATIENT
  Sex: Female

DRUGS (2)
  1. LITHIUM [Concomitant]
     Dates: end: 20111110
  2. CLOZARIL [Suspect]
     Dates: end: 20111110

REACTIONS (10)
  - BRONCHITIS [None]
  - TOXICITY TO VARIOUS AGENTS [None]
  - DISORIENTATION [None]
  - HYPOTENSION [None]
  - CONFUSIONAL STATE [None]
  - VOMITING [None]
  - URINARY TRACT INFECTION [None]
  - DYSARTHRIA [None]
  - RENAL FAILURE ACUTE [None]
  - PLEURAL EFFUSION [None]
